FAERS Safety Report 8368321-8 (Version None)
Quarter: 2012Q2

REPORT INFORMATION
  Report Type: 
  Country: None (occurrence: None)
  Receive Date: 20120517
  Receipt Date: 20120503
  Transmission Date: 20120825
  Serious: Yes (Other)
  Sender: FDA-Public Use
  Company Number: CHPA2012US010364

PATIENT
  Age: 81 Year
  Sex: Female

DRUGS (2)
  1. EXCEDRIN BACK \+ BODY CAPLETS [Suspect]
     Indication: BACK PAIN
     Dosage: UNK, PRN
     Route: 048
  2. EXCEDRIN EXTRA STRENGTH TABLETS [Suspect]
     Indication: BACK PAIN
     Dosage: UNK, PRN
     Route: 048

REACTIONS (3)
  - DYSPNOEA [None]
  - SCOLIOSIS [None]
  - ATRIAL FIBRILLATION [None]
